FAERS Safety Report 6305304-3 (Version None)
Quarter: 2009Q3

REPORT INFORMATION
  Report Type: 
  Country: None (occurrence: None)
  Receive Date: 20090811
  Receipt Date: 20090731
  Transmission Date: 20100115
  Serious: Yes (Other)
  Sender: FDA-Public Use
  Company Number: US-JNJFOC-20090800589

PATIENT
  Age: 76 Year
  Sex: Female
  Weight: 63.5 kg

DRUGS (7)
  1. EXTRA STRENGTH TYLENOL [Suspect]
     Route: 048
  2. EXTRA STRENGTH TYLENOL [Suspect]
     Indication: MUSCLE SPASMS
     Route: 048
  3. ALTACE [Suspect]
     Indication: BLOOD PRESSURE
  4. PREMARIN [Concomitant]
     Indication: HORMONE REPLACEMENT THERAPY
  5. ALLEGRA [Concomitant]
     Indication: MULTIPLE ALLERGIES
  6. SULINDAC [Concomitant]
     Indication: PAIN
  7. SYNTHROID [Concomitant]
     Indication: THYROID DISORDER

REACTIONS (5)
  - BLOOD PRESSURE INCREASED [None]
  - PAIN IN JAW [None]
  - PHARYNGEAL OEDEMA [None]
  - SWELLING FACE [None]
  - SWOLLEN TONGUE [None]
